FAERS Safety Report 13377576 (Version 2)
Quarter: 2025Q3

REPORT INFORMATION
  Report Type: Report from Study
  Country: US (occurrence: US)
  Receive Date: 20170328
  Receipt Date: 20250826
  Transmission Date: 20251021
  Serious: Yes (Other)
  Sender: PFIZER
  Company Number: US-PFIZER INC-2017001192

PATIENT
  Age: 48 Year
  Sex: Male

DRUGS (10)
  1. SOLU-MEDROL [Suspect]
     Active Substance: METHYLPREDNISOLONE SODIUM SUCCINATE
     Indication: Neurosarcoidosis
     Dosage: 1 G, DAILY
     Dates: start: 2013
  2. SOLU-MEDROL [Suspect]
     Active Substance: METHYLPREDNISOLONE SODIUM SUCCINATE
     Indication: Hypothalamo-pituitary disorder
  3. PREDNISONE [Suspect]
     Active Substance: PREDNISONE
     Indication: Neurosarcoidosis
     Dosage: 80 MG, DAILY
     Dates: start: 2013
  4. PREDNISONE [Suspect]
     Active Substance: PREDNISONE
     Indication: Hypothalamo-pituitary disorder
     Dosage: 60 MG, DAILY
  5. AZATHIOPRINE [Concomitant]
     Active Substance: AZATHIOPRINE
     Indication: Hypothalamo-pituitary disorder
     Dosage: 100 MG, DAILY
     Dates: start: 2013
  6. AZATHIOPRINE [Concomitant]
     Active Substance: AZATHIOPRINE
     Indication: Neurosarcoidosis
  7. TESTOSTERONE [Concomitant]
     Active Substance: TESTOSTERONE
     Indication: Hypothalamo-pituitary disorder
     Dates: start: 2013
  8. TESTOSTERONE [Concomitant]
     Active Substance: TESTOSTERONE
     Indication: Neurosarcoidosis
  9. DESMOPRESSIN [Concomitant]
     Active Substance: DESMOPRESSIN
     Indication: Hypothalamo-pituitary disorder
     Dates: start: 2013
  10. DESMOPRESSIN [Concomitant]
     Active Substance: DESMOPRESSIN
     Indication: Neurosarcoidosis

REACTIONS (1)
  - Steroid diabetes [Recovered/Resolved]
